FAERS Safety Report 13549004 (Version 2)
Quarter: 2017Q3

REPORT INFORMATION
  Report Type: Spontaneous
  Country: US (occurrence: US)
  Receive Date: 20170516
  Receipt Date: 20170721
  Transmission Date: 20171127
  Serious: No
  Sender: FDA-Public Use
  Company Number: US-PFIZER INC-2017211928

PATIENT
  Age: 11 Year
  Sex: Female

DRUGS (1)
  1. CHILDRENS ADVIL [Suspect]
     Active Substance: IBUPROFEN
     Indication: PYREXIA
     Dosage: UNK(3 TSP EVERY 6 HRS)
     Route: 048

REACTIONS (2)
  - Tooth discolouration [Recovered/Resolved]
  - Skin discolouration [Recovered/Resolved]
